APPROVED DRUG PRODUCT: VICKS FORMULA 44
Active Ingredient: DIPHENHYDRAMINE HYDROCHLORIDE
Strength: 12.5MG/5ML
Dosage Form/Route: SYRUP;ORAL
Application: A070524 | Product #001
Applicant: WARNER CHILCOTT CO LLC
Approved: Jan 14, 1987 | RLD: No | RS: No | Type: DISCN